FAERS Safety Report 15169562 (Version 1)
Quarter: 2018Q3

REPORT INFORMATION
  Report Type: Spontaneous
  Country: FR (occurrence: FR)
  Receive Date: 20180720
  Receipt Date: 20180720
  Transmission Date: 20181010
  Serious: Yes (Hospitalization)
  Sender: FDA-Public Use
  Company Number: FR-TEVA-2018-FR-920494

PATIENT
  Age: 62 Year
  Sex: Male
  Weight: 64 kg

DRUGS (7)
  1. LOSARTAN/HYDROCHLOROTHIAZIDE 50/12.5 [Concomitant]
     Indication: BLOOD PRESSURE MEASUREMENT
     Dosage: 1 DOSAGE FORMS DAILY;
     Route: 048
     Dates: start: 2016
  2. LOSARTAN. [Concomitant]
     Active Substance: LOSARTAN
     Indication: HYPERTENSION
     Dosage: STARTED BEFORE 2016
  3. SOTALOL TEVA 80 MG [Suspect]
     Active Substance: SOTALOL
     Indication: TACHYCARDIA
     Dosage: 0.5 TABLET 2 TIMES PER DAY
     Route: 048
     Dates: start: 20180207, end: 201806
  4. PREMIXON 160 MG [Concomitant]
     Indication: PROSTATIC DISORDER
     Dosage: 2 DOSAGE FORMS DAILY;
     Route: 048
     Dates: start: 2016
  5. KETUM [Concomitant]
     Active Substance: KETOPROFEN
     Indication: PAIN
  6. TRAMADOL LP 200 MG [Concomitant]
     Indication: PAIN
     Dosage: 1 DOSAGE FORMS DAILY;
     Route: 048
     Dates: start: 2016
  7. SEVREDOL 20 MG [Concomitant]
     Active Substance: MORPHINE
     Indication: PAIN
     Dosage: 1 DOSAGE FORMS DAILY;
     Route: 048
     Dates: start: 2016

REACTIONS (6)
  - Dyspnoea [Recovered/Resolved]
  - Palpitations [Unknown]
  - Tachycardia [Recovered/Resolved]
  - Product substitution issue [Unknown]
  - Heart rate irregular [Recovered/Resolved]
  - Cardiac arrest [Recovered/Resolved]

NARRATIVE: CASE EVENT DATE: 20180525
